FAERS Safety Report 10076852 (Version 2)
Quarter: 2014Q2

REPORT INFORMATION
  Report Type: Spontaneous
  Country: GB (occurrence: GB)
  Receive Date: 20140414
  Receipt Date: 20140522
  Transmission Date: 20141212
  Serious: Yes (Other)
  Sender: FDA-Public Use
  Company Number: GB-TEVA-473108ISR

PATIENT
  Sex: Male

DRUGS (1)
  1. CARVEDILOL [Suspect]

REACTIONS (4)
  - Cardiac flutter [Unknown]
  - Drug ineffective [Unknown]
  - Cardiac disorder [Unknown]
  - Product substitution issue [Unknown]
